FAERS Safety Report 20885500 (Version 1)
Quarter: 2022Q2

REPORT INFORMATION
  Report Type: Spontaneous
  Country: US (occurrence: None)
  Receive Date: 20220527
  Receipt Date: 20220527
  Transmission Date: 20220721
  Serious: Yes (unspecified)
  Sender: FDA-Public Use
  Company Number: None

PATIENT
  Age: 31 Year
  Sex: Female

DRUGS (1)
  1. PARAGARD T 380A [Suspect]
     Active Substance: COPPER

REACTIONS (6)
  - Device dislocation [None]
  - Pain [None]
  - Bacterial vaginosis [None]
  - Urinary tract disorder [None]
  - Discomfort [None]
  - Endometritis [None]

NARRATIVE: CASE EVENT DATE: 20220520
